FAERS Safety Report 9272427 (Version 2)
Quarter: 2013Q2

REPORT INFORMATION
  Report Type: Report from Study
  Country: FR (occurrence: FR)
  Receive Date: 20130506
  Receipt Date: 20130610
  Transmission Date: 20140414
  Serious: Yes (Disabling)
  Sender: FDA-Public Use
  Company Number: FR-PFIZER INC-2013070447

PATIENT
  Age: 48 Year
  Sex: Female
  Weight: 65 kg

DRUGS (2)
  1. SUTENT [Suspect]
     Indication: NEUROENDOCRINE TUMOUR
     Dosage: 37.5 MG, 1X/DAY
     Route: 048
     Dates: start: 20130116
  2. SKENAN [Concomitant]
     Indication: PELVIC PAIN
     Dosage: 60 MG, 1X/DAY
     Route: 048
     Dates: start: 20130212

REACTIONS (1)
  - Asthenia [Unknown]
